FAERS Safety Report 14036622 (Version 1)
Quarter: 2017Q4

REPORT INFORMATION
  Report Type: Spontaneous
  Country: US (occurrence: US)
  Receive Date: 20171003
  Receipt Date: 20171003
  Transmission Date: 20180321
  Serious: No
  Sender: FDA-Public Use
  Company Number: US-ROCHE-1946903

PATIENT

DRUGS (1)
  1. CATHFLO ACTIVASE [Suspect]
     Active Substance: ALTEPLASE
     Indication: CEREBROVASCULAR ACCIDENT
     Dosage: UNKNOWN
     Route: 042
     Dates: start: 20170524

REACTIONS (3)
  - Device issue [Unknown]
  - Medication error [Unknown]
  - Underdose [Unknown]

NARRATIVE: CASE EVENT DATE: 20170524
